FAERS Safety Report 25732154 (Version 1)
Quarter: 2025Q3

REPORT INFORMATION
  Report Type: Spontaneous
  Country: EU (occurrence: EU)
  Receive Date: 20250827
  Receipt Date: 20250827
  Transmission Date: 20251020
  Serious: Yes (Other)
  Sender: MYLAN
  Company Number: None

PATIENT
  Age: 85 Year
  Sex: Female
  Weight: 69 kg

DRUGS (28)
  1. ATORVASTATIN [Interacting]
     Active Substance: ATORVASTATIN
     Indication: Hypercholesterolaemia
     Dosage: 80 MILLIGRAM, QD
     Dates: start: 20250423, end: 20250507
  2. ATORVASTATIN [Interacting]
     Active Substance: ATORVASTATIN
     Dosage: 80 MILLIGRAM, QD
     Route: 048
     Dates: start: 20250423, end: 20250507
  3. ATORVASTATIN [Interacting]
     Active Substance: ATORVASTATIN
     Dosage: 80 MILLIGRAM, QD
     Route: 048
     Dates: start: 20250423, end: 20250507
  4. ATORVASTATIN [Interacting]
     Active Substance: ATORVASTATIN
     Dosage: 80 MILLIGRAM, QD
     Dates: start: 20250423, end: 20250507
  5. CORDARONE [Interacting]
     Active Substance: AMIODARONE HYDROCHLORIDE
     Indication: Atrial fibrillation
     Dosage: 5 DOSAGE FORM, QD,  200 MG/DAY, 5 DAYS OUT OF 7, SCORED TABLET
     Dates: start: 202502
  6. CORDARONE [Interacting]
     Active Substance: AMIODARONE HYDROCHLORIDE
     Dosage: 5 DOSAGE FORM, QD,  200 MG/DAY, 5 DAYS OUT OF 7, SCORED TABLET
     Route: 048
     Dates: start: 202502
  7. CORDARONE [Interacting]
     Active Substance: AMIODARONE HYDROCHLORIDE
     Dosage: 5 DOSAGE FORM, QD,  200 MG/DAY, 5 DAYS OUT OF 7, SCORED TABLET
     Route: 048
     Dates: start: 202502
  8. CORDARONE [Interacting]
     Active Substance: AMIODARONE HYDROCHLORIDE
     Dosage: 5 DOSAGE FORM, QD,  200 MG/DAY, 5 DAYS OUT OF 7, SCORED TABLET
     Dates: start: 202502
  9. ELIQUIS [Concomitant]
     Active Substance: APIXABAN
  10. ELIQUIS [Concomitant]
     Active Substance: APIXABAN
     Route: 065
  11. ELIQUIS [Concomitant]
     Active Substance: APIXABAN
     Route: 065
  12. ELIQUIS [Concomitant]
     Active Substance: APIXABAN
  13. LEVOTHYROXINE [Concomitant]
     Active Substance: LEVOTHYROXINE
  14. LEVOTHYROXINE [Concomitant]
     Active Substance: LEVOTHYROXINE
     Route: 065
  15. LEVOTHYROXINE [Concomitant]
     Active Substance: LEVOTHYROXINE
     Route: 065
  16. LEVOTHYROXINE [Concomitant]
     Active Substance: LEVOTHYROXINE
  17. VALSARTAN [Concomitant]
     Active Substance: VALSARTAN
  18. VALSARTAN [Concomitant]
     Active Substance: VALSARTAN
     Route: 065
  19. VALSARTAN [Concomitant]
     Active Substance: VALSARTAN
     Route: 065
  20. VALSARTAN [Concomitant]
     Active Substance: VALSARTAN
  21. HYDROCHLOROTHIAZIDE [Concomitant]
     Active Substance: HYDROCHLOROTHIAZIDE
  22. HYDROCHLOROTHIAZIDE [Concomitant]
     Active Substance: HYDROCHLOROTHIAZIDE
     Route: 065
  23. HYDROCHLOROTHIAZIDE [Concomitant]
     Active Substance: HYDROCHLOROTHIAZIDE
     Route: 065
  24. HYDROCHLOROTHIAZIDE [Concomitant]
     Active Substance: HYDROCHLOROTHIAZIDE
  25. FOLIC ACID [Concomitant]
     Active Substance: FOLIC ACID
  26. FOLIC ACID [Concomitant]
     Active Substance: FOLIC ACID
     Route: 065
  27. FOLIC ACID [Concomitant]
     Active Substance: FOLIC ACID
     Route: 065
  28. FOLIC ACID [Concomitant]
     Active Substance: FOLIC ACID

REACTIONS (2)
  - Rhabdomyolysis [Not Recovered/Not Resolved]
  - Drug interaction [Recovered/Resolved]

NARRATIVE: CASE EVENT DATE: 20250423
